FAERS Safety Report 8069941-0 (Version None)
Quarter: 2012Q1

REPORT INFORMATION
  Report Type: 
  Country: None (occurrence: None)
  Receive Date: 20120125
  Receipt Date: 20120111
  Transmission Date: 20120608
  Serious: Yes (Other)
  Sender: FDA-Public Use
  Company Number: IT-UCBSA-049674

PATIENT
  Sex: Female

DRUGS (2)
  1. HYDROCHLOROTHIAZIDE [Suspect]
  2. ISOSORBIDE MONONITRATE [Suspect]

REACTIONS (2)
  - HYPERTENSIVE CRISIS [None]
  - DRUG INEFFECTIVE [None]
